FAERS Safety Report 23866053 (Version 4)
Quarter: 2024Q4

REPORT INFORMATION
  Report Type: Spontaneous
  Country: FR (occurrence: FR)
  Receive Date: 20240517
  Receipt Date: 20241107
  Transmission Date: 20250115
  Serious: Yes (Hospitalization, Other)
  Sender: BRISTOL-MYERS SQUIBB COMPANY
  Company Number: None

PATIENT
  Age: 79 Year
  Sex: Male
  Weight: 64 kg

DRUGS (10)
  1. ELIQUIS [Suspect]
     Active Substance: APIXABAN
     Indication: Atrial fibrillation
     Route: 048
     Dates: start: 201805
  2. ALPRAZOLAM [Suspect]
     Active Substance: ALPRAZOLAM
     Indication: Anxiety
     Dosage: SCORED TABLET
     Route: 048
     Dates: start: 202301
  3. TAMSULOSIN HYDROCHLORIDE [Suspect]
     Active Substance: TAMSULOSIN HYDROCHLORIDE
     Indication: Benign prostatic hyperplasia
     Dosage: EXTENDED-RELEASE CAPSULE
     Route: 048
     Dates: start: 202308, end: 202311
  4. INDAPAMIDE\PERINDOPRIL ARGININE [Suspect]
     Active Substance: INDAPAMIDE\PERINDOPRIL ARGININE
     Indication: Hypertension
     Dosage: STRENGTH: 2.5 MG/0.625 MG, 1 CP/DAY
     Route: 048
     Dates: start: 202106, end: 202311
  5. BACTRIM [Suspect]
     Active Substance: SULFAMETHOXAZOLE\TRIMETHOPRIM
     Indication: Immunodeficiency
     Dosage: CP X2/WEEK
     Route: 048
     Dates: start: 202102
  6. ZYDELIG [Suspect]
     Active Substance: IDELALISIB
     Indication: Follicular lymphoma
     Route: 048
     Dates: start: 20181126, end: 201909
  7. ZYDELIG [Suspect]
     Active Substance: IDELALISIB
     Route: 048
     Dates: start: 201909, end: 202002
  8. ZYDELIG [Suspect]
     Active Substance: IDELALISIB
     Route: 048
     Dates: start: 202002, end: 20231128
  9. FOLIC ACID [Suspect]
     Active Substance: FOLIC ACID
     Indication: Anaemia folate deficiency
     Route: 048
     Dates: start: 202102
  10. VALACYCLOVIR [Suspect]
     Active Substance: VALACYCLOVIR HYDROCHLORIDE
     Indication: Immunodeficiency
     Route: 048
     Dates: start: 202102

REACTIONS (1)
  - Extrapyramidal disorder [Recovering/Resolving]

NARRATIVE: CASE EVENT DATE: 20230901
